FAERS Safety Report 5466965-4 (Version None)
Quarter: 2007Q3

REPORT INFORMATION
  Report Type: 
  Country: None (occurrence: None)
  Receive Date: 20070921
  Receipt Date: 20070921
  Transmission Date: 20080115
  Serious: Yes (Life-Threatening, Other)
  Sender: FDA-Public Use
  Company Number: None

PATIENT
  Age: 53 Year
  Sex: Female
  Weight: 90.7194 kg

DRUGS (11)
  1. NOVOLOG [Suspect]
     Indication: DIABETES MELLITUS
     Dosage: INSULIN PUMP
     Dates: start: 20070815, end: 20070818
  2. POTASSIUM CHLORIDE [Concomitant]
  3. GABAPENTIN [Concomitant]
  4. WELLBUTRIN XL [Concomitant]
  5. LEVOTHYROXINE SODIUM [Concomitant]
  6. DIOVAN HCT [Concomitant]
  7. TOPROL-XL [Concomitant]
  8. PRAASTATIN [Concomitant]
  9. SERTRALINE [Concomitant]
  10. CELEBREX [Concomitant]
  11. AMLODIPINE [Concomitant]

REACTIONS (2)
  - KETOACIDOSIS [None]
  - PHARMACEUTICAL PRODUCT COMPLAINT [None]
